FAERS Safety Report 20644260 (Version 1)
Quarter: 2022Q1

REPORT INFORMATION
  Report Type: Spontaneous
  Country: US (occurrence: US)
  Receive Date: 20220328
  Receipt Date: 20220328
  Transmission Date: 20220423
  Serious: Yes (Other)
  Sender: FDA-Public Use
  Company Number: US-BRISTOL-MYERS SQUIBB COMPANY-2022-010494

PATIENT
  Age: 78 Year
  Sex: Male
  Weight: 70 kg

DRUGS (9)
  1. REVLIMID [Suspect]
     Active Substance: LENALIDOMIDE
     Indication: Plasma cell myeloma
     Dosage: TILL 28 DAYS
     Route: 048
     Dates: start: 20220128
  2. REVLIMID [Suspect]
     Active Substance: LENALIDOMIDE
     Dosage: REFILL-DOSE CHANGE
     Route: 048
     Dates: start: 20220125, end: 20220312
  3. REVLIMID [Suspect]
     Active Substance: LENALIDOMIDE
     Dosage: EVERY OTHER DAY
     Route: 048
     Dates: start: 20220312
  4. OSYROL LASIX [FUROSEMIDE SODIUM;POTASSIUM CANRENOATE] [Concomitant]
     Indication: Product used for unknown indication
     Route: 048
     Dates: start: 20201123
  5. CURAMED [CURCUMA LONGA RHIZOME] [Concomitant]
     Indication: Product used for unknown indication
     Dates: start: 20201123
  6. VALTREX [Concomitant]
     Active Substance: VALACYCLOVIR HYDROCHLORIDE
     Indication: Product used for unknown indication
     Route: 048
     Dates: start: 20201123
  7. ZOFRAN [Concomitant]
     Active Substance: ONDANSETRON HYDROCHLORIDE
     Route: 048
     Dates: start: 20201123
  8. ASPIRIN [Concomitant]
     Active Substance: ASPIRIN
     Indication: Product used for unknown indication
     Route: 048
     Dates: start: 20211207
  9. SHINGRIX [Concomitant]
     Active Substance: RECOMBINANT VARICELLA ZOSTER VIRUS (VZV) GLYCOPROTEIN E
     Indication: Product used for unknown indication
     Dosage: 50 (UNITS NOT SPECIFIED)
     Route: 030
     Dates: start: 20211207

REACTIONS (1)
  - Neutropenia [Recovering/Resolving]

NARRATIVE: CASE EVENT DATE: 20220227
